FAERS Safety Report 5449830-8 (Version None)
Quarter: 2007Q3

REPORT INFORMATION
  Report Type: 
  Country: None (occurrence: None)
  Receive Date: 20070904
  Receipt Date: 20070820
  Transmission Date: 20080115
  Serious: Yes (Life-Threatening, Hospitalization, Other)
  Sender: FDA-Public Use
  Company Number: WSDF_00664

PATIENT
  Age: 70 Year
  Sex: Female
  Weight: 83.9154 kg

DRUGS (16)
  1. WINRHO SDF [Suspect]
     Indication: IDIOPATHIC THROMBOCYTOPENIC PURPURA
     Dosage: 75 UG/KG ONCE IV
     Route: 042
     Dates: start: 20070803, end: 20070803
  2. POTASSIUM CHLORIDE [Concomitant]
  3. PLAVIX [Concomitant]
  4. ATENOLOL [Concomitant]
  5. LASIX [Concomitant]
  6. GLYBURIDE [Concomitant]
  7. LANTUS [Concomitant]
  8. PRILOSEC [Concomitant]
  9. LISINOPRIL [Concomitant]
  10. HUMULIN R [Concomitant]
  11. ASPIRIN [Concomitant]
  12. NITROQUICK [Concomitant]
  13. CYCLOBENZAPRINE HCL [Concomitant]
  14. RITUXAN [Concomitant]
  15. NOVOLOG [Concomitant]
  16. TYLENOL (CAPLET) [Concomitant]

REACTIONS (17)
  - ACUTE CORONARY SYNDROME [None]
  - BACK PAIN [None]
  - BLOOD POTASSIUM DECREASED [None]
  - CHILLS [None]
  - CONFUSIONAL STATE [None]
  - CORONARY ARTERY OCCLUSION [None]
  - DIZZINESS [None]
  - FEELING COLD [None]
  - GAIT DISTURBANCE [None]
  - HEADACHE [None]
  - HYPOAESTHESIA ORAL [None]
  - HYPOTENSION [None]
  - MENTAL STATUS CHANGES [None]
  - MYOCARDIAL INFARCTION [None]
  - SEDATION [None]
  - TREMOR [None]
  - VISUAL ACUITY REDUCED [None]
